FAERS Safety Report 12541788 (Version 1)
Quarter: 2016Q3

REPORT INFORMATION
  Report Type: Spontaneous
  Country: GB (occurrence: GB)
  Receive Date: 20160708
  Receipt Date: 20160708
  Transmission Date: 20161109
  Serious: Yes (Death)
  Sender: FDA-Public Use
  Company Number: GB-MERZ NORTH AMERICA, INC.-16MRZ-00422

PATIENT
  Age: 89 Year
  Sex: Female

DRUGS (1)
  1. XEOMIN [Suspect]
     Active Substance: INCOBOTULINUMTOXINA
     Indication: OESOPHAGEAL DISORDER

REACTIONS (7)
  - Mediastinitis [Fatal]
  - Vascular pseudoaneurysm [Fatal]
  - Haematoma [Fatal]
  - Musculoskeletal pain [Fatal]
  - Cardiac arrest [Fatal]
  - Chest pain [Fatal]
  - Off label use [Fatal]
